FAERS Safety Report 14165442 (Version 8)
Quarter: 2020Q1

REPORT INFORMATION
  Report Type: Report from Study
  Country: CA (occurrence: CA)
  Receive Date: 20171107
  Receipt Date: 20200120
  Transmission Date: 20200409
  Serious: Yes (Other)
  Sender: FDA-Public Use
  Company Number: CA-ROCHE-2017774

PATIENT
  Age: 60 Year
  Sex: Female

DRUGS (10)
  1. ACETAMINOPHEN. [Concomitant]
     Active Substance: ACETAMINOPHEN
     Indication: PREMEDICATION
     Route: 048
     Dates: start: 20120309
  2. FOLIC ACID. [Concomitant]
     Active Substance: FOLIC ACID
  3. APO-HYDROXYZINE [Concomitant]
     Active Substance: HYDROXYZINE HYDROCHLORIDE
  4. RITUXAN [Suspect]
     Active Substance: RITUXIMAB
     Route: 042
  5. RITUXAN [Suspect]
     Active Substance: RITUXIMAB
     Route: 042
     Dates: start: 20160304, end: 20190508
  6. METHYLPREDNISOLONE. [Concomitant]
     Active Substance: METHYLPREDNISOLONE
     Indication: PREMEDICATION
     Route: 042
     Dates: start: 20120309
  7. DIPHENHYDRAMINE. [Concomitant]
     Active Substance: DIPHENHYDRAMINE
     Indication: PREMEDICATION
     Route: 042
     Dates: start: 20120309
  8. RITUXAN [Suspect]
     Active Substance: RITUXIMAB
     Indication: RHEUMATOID ARTHRITIS
     Route: 042
     Dates: start: 20120309, end: 20151023
  9. RITUXAN [Suspect]
     Active Substance: RITUXIMAB
     Dosage: TWO MONTHS APART
     Route: 042
     Dates: start: 20191113
  10. METHOTREXATE. [Concomitant]
     Active Substance: METHOTREXATE

REACTIONS (11)
  - Blood pressure increased [Unknown]
  - Blood pressure systolic increased [Unknown]
  - Blood pressure systolic abnormal [Unknown]
  - Intentional product use issue [Unknown]
  - Pneumonia [Recovered/Resolved]
  - Off label use [Unknown]
  - Pneumonia [Recovered/Resolved]
  - Syncope [Unknown]
  - Blood pressure fluctuation [Unknown]
  - Pulmonary fibrosis [Unknown]
  - Oxygen saturation decreased [Unknown]

NARRATIVE: CASE EVENT DATE: 20181126
